FAERS Safety Report 10640213 (Version 3)
Quarter: 2014Q4

REPORT INFORMATION
  Report Type: Spontaneous
  Country: JP (occurrence: JP)
  Receive Date: 20141209
  Receipt Date: 20141215
  Transmission Date: 20150529
  Serious: Yes (Other)
  Sender: FDA-Public Use
  Company Number: JP-ELI_LILLY_AND_COMPANY-JP201411002748

PATIENT
  Sex: Female

DRUGS (4)
  1. LOXONIN [Concomitant]
     Active Substance: LOXOPROFEN SODIUM
  2. MUCOSTA [Concomitant]
     Active Substance: REBAMIPIDE
  3. FORTEO [Suspect]
     Active Substance: TERIPARATIDE
     Indication: OSTEOPOROSIS
     Dosage: UNK
     Route: 058
     Dates: start: 20140226, end: 20140312
  4. VOLTAREN [Concomitant]
     Active Substance: DICLOFENAC SODIUM
     Route: 054

REACTIONS (3)
  - Spinal fracture [Unknown]
  - Decreased appetite [Unknown]
  - Weight decreased [Unknown]

NARRATIVE: CASE EVENT DATE: 2014
